FAERS Safety Report 8084599-2 (Version None)
Quarter: 2012Q1

REPORT INFORMATION
  Report Type: 
  Country: None (occurrence: None)
  Receive Date: 20120128
  Receipt Date: 20110329
  Transmission Date: 20120608
  Serious: No
  Sender: FDA-Public Use
  Company Number: US-ABBOTT-11P-163-0715116-00

PATIENT
  Age: 64 Year
  Sex: Female

DRUGS (14)
  1. SYNTHROID [Concomitant]
     Indication: HYPOTHYROIDISM
  2. HUMIRA [Suspect]
     Indication: CROHN'S DISEASE
     Dates: start: 20101201
  3. XANAX [Concomitant]
     Indication: INSOMNIA
  4. CALCIUM GLUCONATE [Concomitant]
     Indication: PRODUCT USED FOR UNKNOWN INDICATION
  5. TOPROLOL [Concomitant]
     Indication: ARRHYTHMIA
  6. VITAMIN B-12 [Concomitant]
     Indication: PRODUCT USED FOR UNKNOWN INDICATION
  7. PENTASA [Concomitant]
     Indication: CROHN'S DISEASE
  8. VALIUM [Concomitant]
     Indication: ANXIETY
  9. UNKNOWN MEDICATION [Concomitant]
     Indication: DIARRHOEA
  10. IRON [Concomitant]
     Indication: CROHN'S DISEASE
  11. TRAZODONE HCL [Concomitant]
     Indication: INSOMNIA
  12. MULTI-VITAMINS [Concomitant]
     Indication: VITAMIN SUPPLEMENTATION
  13. XANAX [Concomitant]
     Indication: ANXIETY
  14. IRON [Concomitant]
     Indication: HAEMORRHAGE
     Dosage: DAILY

REACTIONS (2)
  - PAIN IN EXTREMITY [None]
  - MUSCULAR WEAKNESS [None]
